FAERS Safety Report 20986749 (Version 1)
Quarter: 2022Q2

REPORT INFORMATION
  Report Type: Spontaneous
  Country: US (occurrence: None)
  Receive Date: 20220617
  Receipt Date: 20220617
  Transmission Date: 20220720
  Serious: Yes (Life-Threatening, Disabling, Other)
  Sender: FDA-Public Use
  Company Number: None

PATIENT
  Age: 28 Year
  Sex: Female
  Weight: 56.25 kg

DRUGS (1)
  1. ESCITALOPRAM [Suspect]
     Active Substance: ESCITALOPRAM OXALATE
     Indication: Anxiety
     Dosage: FREQUENCY : AT BEDTIME;?
     Route: 048
     Dates: start: 20210901, end: 20211128

REACTIONS (8)
  - Loss of libido [None]
  - Depression [None]
  - Anorgasmia [None]
  - Depressed level of consciousness [None]
  - Sexual dysfunction [None]
  - Feeling abnormal [None]
  - Quality of life decreased [None]
  - Female sexual dysfunction [None]

NARRATIVE: CASE EVENT DATE: 20220210
